FAERS Safety Report 5402676-9 (Version None)
Quarter: 2007Q3

REPORT INFORMATION
  Report Type: 
  Country: None (occurrence: None)
  Receive Date: 20070801
  Receipt Date: 20070726
  Transmission Date: 20080115
  Serious: Yes (Other)
  Sender: FDA-Public Use
  Company Number: A0667127A

PATIENT
  Age: 42 Year
  Sex: Female
  Weight: 66 kg

DRUGS (2)
  1. AUGMENTIN '125' [Suspect]
     Indication: PHARYNGOTONSILLITIS
     Dosage: 1TAB TWICE PER DAY
     Route: 048
     Dates: start: 20070712, end: 20070722
  2. NO CONCURRENT MEDICATION [Concomitant]

REACTIONS (2)
  - COLITIS [None]
  - CONSTIPATION [None]
